FAERS Safety Report 7137013-5 (Version None)
Quarter: 2010Q4

REPORT INFORMATION
  Report Type: 
  Country: None (occurrence: None)
  Receive Date: 20101206
  Receipt Date: 20100301
  Transmission Date: 20110411
  Serious: Yes (Death, Other)
  Sender: FDA-Public Use
  Company Number: US-ACTELION-A-US2004-06882

PATIENT

DRUGS (16)
  1. TRACLEER [Suspect]
     Indication: PULMONARY ARTERIAL HYPERTENSION
     Dosage: 125 MG, BID
     Route: 048
     Dates: start: 20040128
  2. TRACLEER [Suspect]
     Dosage: 125 MG, BID
     Route: 048
     Dates: start: 20040720
  3. TRACLEER [Suspect]
     Dosage: 62.5 MG, BID
     Route: 048
     Dates: start: 20040702, end: 20040719
  4. TRACLEER [Suspect]
     Dosage: 62.5 MG, BID
     Route: 048
     Dates: start: 20031229, end: 20040127
  5. TRACLEER [Suspect]
     Dosage: UNK
     Dates: start: 20070901
  6. DIOVAN [Concomitant]
     Dosage: 80 MG, QD
  7. WARFARIN SODIUM [Concomitant]
     Dosage: 3 MG, QOD
     Dates: start: 20040428
  8. WARFARIN SODIUM [Concomitant]
     Dosage: 4.5 MG, QOD
  9. LASIX [Concomitant]
     Dosage: 20 MG, QD
  10. POTASSIUM CHLORIDE [Concomitant]
     Dosage: 20 MEQ, 3 TABS QD
     Dates: start: 20040512
  11. POTASSIUM CHLORIDE [Concomitant]
     Dosage: 20 MEQ, 2 1/2 TABS QD
     Dates: end: 20040511
  12. TRIAMTERENE [Concomitant]
     Dosage: 25 MG, QD
  13. CALTRATE [Concomitant]
     Dosage: UNK, BID
  14. OXYGEN [Concomitant]
     Dosage: 4 L, UNK
  15. MULTI-VITAMINS [Concomitant]
     Dosage: UNK, QD
  16. ACTONEL [Concomitant]
     Dosage: 35 MG, Q1WEEK

REACTIONS (10)
  - ALANINE AMINOTRANSFERASE INCREASED [None]
  - ASPARTATE AMINOTRANSFERASE INCREASED [None]
  - BLOOD ALKALINE PHOSPHATASE INCREASED [None]
  - DEATH [None]
  - HEADACHE [None]
  - HEPATIC ENZYME INCREASED [None]
  - INSOMNIA [None]
  - PAIN [None]
  - THROAT IRRITATION [None]
  - VIRAL INFECTION [None]
